FAERS Safety Report 11373239 (Version 1)
Quarter: 2015Q3

REPORT INFORMATION
  Report Type: Spontaneous
  Country: US (occurrence: US)
  Receive Date: 20150811
  Receipt Date: 20150811
  Transmission Date: 20151125
  Serious: No
  Sender: FDA-Public Use
  Company Number: US-ELI_LILLY_AND_COMPANY-US201207003882

PATIENT
  Sex: Male
  Weight: 72.56 kg

DRUGS (4)
  1. CIALIS [Suspect]
     Active Substance: TADALAFIL
     Indication: ERECTILE DYSFUNCTION
     Dosage: 20 MG, PRN
  2. CIALIS [Suspect]
     Active Substance: TADALAFIL
     Dosage: 1 DF, PRN
  3. VIAGRA [Concomitant]
     Active Substance: SILDENAFIL CITRATE
  4. CIALIS [Suspect]
     Active Substance: TADALAFIL
     Dosage: 80 MG, PRN
     Dates: end: 20120625

REACTIONS (5)
  - Hearing impaired [Recovered/Resolved]
  - Drug resistance [Recovered/Resolved]
  - Overdose [Unknown]
  - Drug ineffective [Recovered/Resolved]
  - Intentional product misuse [Unknown]
